FAERS Safety Report 6757681-7 (Version None)
Quarter: 2010Q2

REPORT INFORMATION
  Report Type: 
  Country: None (occurrence: None)
  Receive Date: 20100604
  Receipt Date: 20100604
  Transmission Date: 20101027
  Serious: Yes (Hospitalization)
  Sender: FDA-Public Use
  Company Number: None

PATIENT
  Sex: Male
  Weight: 76.8 kg

DRUGS (4)
  1. CYTARABINE [Suspect]
     Dosage: 741 MG
  2. MERCAPTOPURINE [Suspect]
     Dosage: 950 MG
  3. METHOTREXATE [Suspect]
     Dosage: 30 MG
  4. CYCLOPHOSPHAMIDE [Suspect]
     Dosage: 1970 MG

REACTIONS (4)
  - CLOSTRIDIUM DIFFICILE COLITIS [None]
  - HEPATIC STEATOSIS [None]
  - PYREXIA [None]
  - SINUS TACHYCARDIA [None]
